FAERS Safety Report 5107755-1 (Version None)
Quarter: 2006Q3

REPORT INFORMATION
  Report Type: 
  Country: None (occurrence: None)
  Receive Date: 20060919
  Receipt Date: 20060907
  Transmission Date: 20061208
  Serious: Yes (Hospitalization)
  Sender: FDA-Public Use
  Company Number: CH-AVENTIS-200614768EU

PATIENT
  Age: 60 Year
  Sex: Male

DRUGS (4)
  1. TRENTAL [Suspect]
     Indication: VENOUS INSUFFICIENCY
     Route: 048
     Dates: start: 20060804, end: 20060815
  2. SOLIAN [Suspect]
     Indication: SCHIZOPHRENIA, PARANOID TYPE
     Route: 048
     Dates: end: 20060713
  3. MARCOUMAR [Concomitant]
     Indication: EMBOLISM VENOUS
     Route: 048
  4. KALIUM HAUSMANN [Concomitant]
     Indication: HYPOKALAEMIA
     Route: 048

REACTIONS (8)
  - CARDIOVASCULAR DISORDER [None]
  - FALL [None]
  - GRAND MAL CONVULSION [None]
  - HAEMATOMA [None]
  - HAEMOGLOBIN DECREASED [None]
  - HYPONATRAEMIA [None]
  - HYPOTENSION [None]
  - HYPOVOLAEMIA [None]
